FAERS Safety Report 5445062-8 (Version None)
Quarter: 2007Q3

REPORT INFORMATION
  Report Type: 
  Country: None (occurrence: None)
  Receive Date: 20070906
  Receipt Date: 20070829
  Transmission Date: 20080115
  Serious: Yes (Hospitalization)
  Sender: FDA-Public Use
  Company Number: SE-ASTRAZENECA-2007SE04668

PATIENT
  Age: 33037 Day
  Sex: Female

DRUGS (9)
  1. METOPROLOL SUCCINATE [Suspect]
     Route: 048
     Dates: end: 20070501
  2. ISOSORBIDE MONONITRATE [Suspect]
     Route: 048
     Dates: end: 20070501
  3. CITALOPRAM HYDROBROMIDE [Suspect]
     Route: 048
     Dates: end: 20070501
  4. ZOLPIDEM TARTRATE [Concomitant]
  5. NITROMEX [Concomitant]
  6. ACETAMINOPHEN [Concomitant]
  7. HEMINEVRIN [Concomitant]
  8. BETOLVEX [Concomitant]
  9. TROMBYL [Concomitant]

REACTIONS (1)
  - ORTHOSTATIC HYPOTENSION [None]
